FAERS Safety Report 20542922 (Version 1)
Quarter: 2022Q1

REPORT INFORMATION
  Report Type: Spontaneous
  Country: US (occurrence: US)
  Receive Date: 20220302
  Receipt Date: 20220302
  Transmission Date: 20220423
  Serious: No
  Sender: FDA-Public Use
  Company Number: US-PERRIGO-21US008404

PATIENT
  Age: 40 Year
  Sex: Female
  Weight: 54.422 kg

DRUGS (1)
  1. SCOPOLAMINE [Suspect]
     Active Substance: SCOPOLAMINE
     Indication: Motion sickness
     Dosage: 1 MG, OVER 72 HOURS
     Route: 062
     Dates: start: 20210511, end: 20210515

REACTIONS (17)
  - Migraine [Recovered/Resolved]
  - Head discomfort [Not Recovered/Not Resolved]
  - Cranial nerve disorder [Unknown]
  - Malaise [Recovering/Resolving]
  - Nausea [Recovered/Resolved]
  - Dysphonia [Recovered/Resolved]
  - Nervousness [Recovered/Resolved]
  - Constipation [Recovering/Resolving]
  - Lung disorder [Not Recovered/Not Resolved]
  - Dizziness [Not Recovered/Not Resolved]
  - Somnolence [Recovered/Resolved]
  - Headache [Not Recovered/Not Resolved]
  - Dry mouth [Recovered/Resolved]
  - Mental impairment [Not Recovered/Not Resolved]
  - Visual impairment [Recovering/Resolving]
  - Mydriasis [Recovered/Resolved]
  - Vision blurred [Recovering/Resolving]

NARRATIVE: CASE EVENT DATE: 20210511
